FAERS Safety Report 17311472 (Version 1)
Quarter: 2020Q1

REPORT INFORMATION
  Report Type: Spontaneous
  Country: US (occurrence: US)
  Receive Date: 20200123
  Receipt Date: 20200123
  Transmission Date: 20200409
  Serious: Yes (Other)
  Sender: FDA-Public Use
  Company Number: US-ROCHE-2326140

PATIENT
  Sex: Female

DRUGS (9)
  1. RITUXAN [Suspect]
     Active Substance: RITUXIMAB
     Indication: PRODUCT USED FOR UNKNOWN INDICATION
     Dosage: 500 MG ON DAY 1, 500 MG ON DAY 15, REPEAT EVERY 3 MONTHS.
     Route: 065
     Dates: start: 20180614
  2. NORCO [Concomitant]
     Active Substance: ACETAMINOPHEN\HYDROCODONE BITARTRATE
  3. ALLOPURINOL. [Concomitant]
     Active Substance: ALLOPURINOL
     Route: 065
  4. PROTONIX [Concomitant]
     Active Substance: PANTOPRAZOLE SODIUM
  5. TRAMADOL. [Concomitant]
     Active Substance: TRAMADOL
  6. GABAPENTIN. [Concomitant]
     Active Substance: GABAPENTIN
  7. METHOTREXATE. [Concomitant]
     Active Substance: METHOTREXATE
  8. PLAQUENIL [Concomitant]
     Active Substance: HYDROXYCHLOROQUINE SULFATE
  9. BACLOFEN. [Concomitant]
     Active Substance: BACLOFEN

REACTIONS (2)
  - Ear infection [Unknown]
  - Osteomyelitis [Unknown]
